FAERS Safety Report 12924947 (Version 1)
Quarter: 2016Q4

REPORT INFORMATION
  Report Type: Spontaneous
  Country: JP (occurrence: JP)
  Receive Date: 20161109
  Receipt Date: 20161109
  Transmission Date: 20170207
  Serious: Yes (Other)
  Sender: FDA-Public Use
  Company Number: JP-PFIZER INC-2016510870

PATIENT
  Age: 81 Year
  Sex: Male

DRUGS (6)
  1. MYDRIN-M [Suspect]
     Active Substance: TROPICAMIDE
     Indication: GLAUCOMA
     Route: 047
  2. CARTEOLOL [Suspect]
     Active Substance: CARTEOLOL
     Indication: GLAUCOMA
     Route: 047
  3. XALATAN [Suspect]
     Active Substance: LATANOPROST
     Indication: GLAUCOMA
     Route: 047
  4. RIPASUDIL HYDROCHLORIDE DIHYDRATE [Suspect]
     Active Substance: RIPASUDIL HYDROCHLORIDE DIHYDRATE
     Indication: GLAUCOMA
     Route: 047
  5. HYALEIN [Suspect]
     Active Substance: HYALURONATE SODIUM
     Indication: GLAUCOMA
     Route: 047
  6. CRAVIT [Suspect]
     Active Substance: LEVOFLOXACIN
     Indication: GLAUCOMA
     Route: 047

REACTIONS (2)
  - Toxicity to various agents [Recovering/Resolving]
  - Keratopathy [Recovering/Resolving]
